FAERS Safety Report 10239045 (Version 1)
Quarter: 2014Q2

REPORT INFORMATION
  Report Type: Spontaneous
  Country: US (occurrence: US)
  Receive Date: 20140616
  Receipt Date: 20140616
  Transmission Date: 20141212
  Serious: Yes (Other)
  Sender: FDA-Public Use
  Company Number: US-PFIZER INC-2014163922

PATIENT
  Sex: Female

DRUGS (2)
  1. XELJANZ [Suspect]
     Dosage: 5 MG, 2X/DAY
     Dates: start: 20140603
  2. MEDROL [Suspect]
     Dosage: UNK
     Dates: start: 20140611

REACTIONS (2)
  - Abasia [Unknown]
  - Pain [Unknown]
